FAERS Safety Report 6712556-4 (Version None)
Quarter: 2010Q2

REPORT INFORMATION
  Report Type: 
  Country: None (occurrence: None)
  Receive Date: 20100506
  Receipt Date: 20100426
  Transmission Date: 20101027
  Serious: Yes (Hospitalization, Disabling, Other)
  Sender: FDA-Public Use
  Company Number: CA-BAYER-201018959NA

PATIENT
  Age: 20 Year
  Sex: Female

DRUGS (6)
  1. YAZ [Suspect]
     Indication: DRUG USE FOR UNKNOWN INDICATION
     Route: 048
     Dates: start: 20080101, end: 20100302
  2. CLONAZEPAM [Concomitant]
     Dosage: UNIT DOSE: 0.5 MG
     Route: 048
     Dates: start: 20100227, end: 20100301
  3. BACLOFEN [Concomitant]
     Route: 048
     Dates: end: 20100301
  4. BOWEL PROTOCOL [Concomitant]
  5. ACETAMINOPHEN [Concomitant]
     Dosage: 4 TIMES PER DAY AS NEEDED
  6. GRAVOL TAB [Concomitant]
     Dosage: 25-50 MG AT BED TIME AS NEEDED

REACTIONS (10)
  - ANXIETY [None]
  - BACK PAIN [None]
  - CHEST PAIN [None]
  - DYSPNOEA [None]
  - FUNGAL INFECTION [None]
  - NEUROPATHY PERIPHERAL [None]
  - PAIN [None]
  - PALPITATIONS [None]
  - PANIC ATTACK [None]
  - SLEEP DISORDER [None]
